FAERS Safety Report 4598003-X (Version None)
Quarter: 2005Q1

REPORT INFORMATION
  Report Type: 
  Country: None (occurrence: None)
  Receive Date: 20050209
  Receipt Date: 20041021
  Transmission Date: 20050727
  Serious: Yes (Other)
  Sender: FDA-Public Use
  Company Number: 384194

PATIENT
  Sex: Female

DRUGS (2)
  1. TORADOL [Suspect]
  2. NASACORT [Concomitant]

REACTIONS (1)
  - ANAPHYLACTIC REACTION [None]
